FAERS Safety Report 4335216-6 (Version None)
Quarter: 2004Q1

REPORT INFORMATION
  Report Type: 
  Country: None (occurrence: None)
  Receive Date: 20040329
  Receipt Date: 20031201
  Transmission Date: 20041129
  Serious: No
  Sender: FDA-Public Use
  Company Number: 03P-163-0243083-00

PATIENT
  Age: 45 Year
  Sex: Female

DRUGS (7)
  1. HUMIRA [Suspect]
     Indication: RHEUMATOID ARTHRITIS
     Dosage: 40 MG, 1 IN 2 WK, SUBCUTANEOUS
     Route: 058
     Dates: start: 20030601, end: 20030701
  2. HUMIRA [Suspect]
     Indication: RHEUMATOID ARTHRITIS
     Dosage: 40 MG, 1 IN 2 WK, SUBCUTANEOUS
     Route: 058
     Dates: start: 20030901, end: 20031001
  3. PREDNISONE [Concomitant]
  4. METHOTREXATE SODIUM [Concomitant]
  5. FOLIC ACID [Concomitant]
  6. HYZAAR [Concomitant]
  7. LORATADINE [Concomitant]

REACTIONS (4)
  - PRURITUS [None]
  - SCAR [None]
  - SKIN DISORDER [None]
  - URTICARIA [None]
